FAERS Safety Report 10409251 (Version 4)
Quarter: 2014Q4

REPORT INFORMATION
  Report Type: Spontaneous
  Country: US (occurrence: US)
  Receive Date: 20140826
  Receipt Date: 20141216
  Transmission Date: 20150528
  Serious: Yes (Hospitalization, Other)
  Sender: FDA-Public Use
  Company Number: US-JNJFOC-20140817962

PATIENT
  Age: 14 Year
  Sex: Female
  Weight: 55.79 kg

DRUGS (1)
  1. TYLENOL EXTRA STRENGTH [Suspect]
     Active Substance: ACETAMINOPHEN
     Indication: HEADACHE
     Dosage: TWICE BETWEEN 7PM AND 11PM, TOOK 10 TABLETS OF PARACETAMOL
     Route: 048
     Dates: start: 20130825, end: 20130825

REACTIONS (12)
  - Accidental overdose [Unknown]
  - Hepatic enzyme increased [Recovering/Resolving]
  - Fatigue [Unknown]
  - Acute hepatic failure [Unknown]
  - Dyspnoea [Recovered/Resolved]
  - Somnolence [Unknown]
  - Coagulopathy [Recovering/Resolving]
  - Lip swelling [Unknown]
  - Cough [Recovered/Resolved]
  - Retching [Unknown]
  - Expired product administered [Unknown]
  - Diarrhoea [Unknown]

NARRATIVE: CASE EVENT DATE: 201308
